FAERS Safety Report 14225602 (Version 4)
Quarter: 2018Q1

REPORT INFORMATION
  Report Type: Spontaneous
  Country: US (occurrence: US)
  Receive Date: 20171127
  Receipt Date: 20180227
  Transmission Date: 20180508
  Serious: No
  Sender: FDA-Public Use
  Company Number: US-PFIZER INC-2017505592

PATIENT
  Age: 79 Year
  Sex: Male
  Weight: 70.31 kg

DRUGS (3)
  1. ATROPINE SULFATE/DIPHENOXYLATE HYDROCHLORIDE [Suspect]
     Active Substance: ATROPINE SULFATE\DIPHENOXYLATE HYDROCHLORIDE
     Dosage: UNK
     Dates: start: 201704
  2. ATROPINE SULFATE/DIPHENOXYLATE HYDROCHLORIDE [Suspect]
     Active Substance: ATROPINE SULFATE\DIPHENOXYLATE HYDROCHLORIDE
     Indication: CROHN^S DISEASE
     Dosage: 2.5 MG, UNK
  3. TOPROL XL [Concomitant]
     Active Substance: METOPROLOL SUCCINATE
     Indication: CARDIAC DISORDER
     Dosage: 50 MG, AT BEDTIME

REACTIONS (3)
  - Product use issue [Unknown]
  - Drug ineffective for unapproved indication [Unknown]
  - Weight decreased [Unknown]

NARRATIVE: CASE EVENT DATE: 201704
